FAERS Safety Report 16527976 (Version 1)
Quarter: 2019Q3

REPORT INFORMATION
  Report Type: Spontaneous
  Country: AU (occurrence: AU)
  Receive Date: 20190703
  Receipt Date: 20190703
  Transmission Date: 20191004
  Serious: Yes (Other)
  Sender: FDA-Public Use
  Company Number: AU-AMREGENT-20191362

PATIENT
  Age: 20 Year
  Sex: Female

DRUGS (1)
  1. FERINJECT [Suspect]
     Active Substance: FERRIC CARBOXYMALTOSE
     Dosage: UNKNOWN
     Route: 042
     Dates: start: 2018

REACTIONS (4)
  - Malaise [Unknown]
  - Tremor [Unknown]
  - Hyperhidrosis [Unknown]
  - Pyrexia [Unknown]

NARRATIVE: CASE EVENT DATE: 20181023
